FAERS Safety Report 16589751 (Version 1)
Quarter: 2019Q3

REPORT INFORMATION
  Report Type: Other
  Country: US (occurrence: US)
  Receive Date: 20190718
  Receipt Date: 20190718
  Transmission Date: 20191004
  Serious: No
  Sender: FDA-Public Use
  Company Number: US-SWEDISH ORPHAN BIOVITRUM-2019US0837

PATIENT
  Sex: Female

DRUGS (8)
  1. NUCYNTA ER [Concomitant]
     Active Substance: TAPENTADOL HYDROCHLORIDE
  2. METOPROLOL ER [Concomitant]
     Active Substance: METOPROLOL SUCCINATE
  3. NUCYNTA [Concomitant]
     Active Substance: TAPENTADOL HYDROCHLORIDE
  4. KINERET [Suspect]
     Active Substance: ANAKINRA
     Indication: RHEUMATOID ARTHRITIS
     Route: 058
     Dates: start: 20190403
  5. CABAPENTIN [Concomitant]
  6. ZOLPIDEM ER [Concomitant]
     Active Substance: ZOLPIDEM TARTRATE
  7. RAMIPEXOLE [Concomitant]
  8. LEVOTHYROXINE. [Concomitant]
     Active Substance: LEVOTHYROXINE

REACTIONS (15)
  - Nasopharyngitis [Unknown]
  - Throat irritation [Unknown]
  - Injection site pruritus [Unknown]
  - Injection site swelling [Unknown]
  - Injection site erythema [Unknown]
  - Oropharyngeal pain [Unknown]
  - Sinus disorder [Unknown]
  - Injection site mass [Unknown]
  - Product dose omission [Unknown]
  - Sinus pain [Unknown]
  - Injection site urticaria [Unknown]
  - Rash [Unknown]
  - Injection site hypersensitivity [Unknown]
  - Injection site pain [Unknown]
  - Injection site rash [Unknown]
